FAERS Safety Report 6007402-0 (Version None)
Quarter: 2008Q4

REPORT INFORMATION
  Report Type: 
  Country: None (occurrence: None)
  Receive Date: 20081217
  Receipt Date: 20080409
  Transmission Date: 20090506
  Serious: Yes (Hospitalization)
  Sender: FDA-Public Use
  Company Number: US-ASTRAZENECA-2008UW07253

PATIENT
  Age: 60 Year
  Sex: Female

DRUGS (10)
  1. CRESTOR [Suspect]
     Route: 048
  2. TRICOR [Interacting]
  3. ACTOS PLUS MED [Concomitant]
     Dosage: 15/500
  4. COREG [Concomitant]
  5. FOSAMAX [Concomitant]
  6. BENICAR [Concomitant]
     Dosage: 40/12.5MG
  7. LEVOTHYROXINE SODIUM [Concomitant]
  8. ASPIRIN [Concomitant]
  9. GLUCOTROL XL [Concomitant]
  10. ALBUTEROL [Concomitant]

REACTIONS (4)
  - ALANINE AMINOTRANSFERASE INCREASED [None]
  - ASPARTATE AMINOTRANSFERASE INCREASED [None]
  - DRUG INTERACTION [None]
  - RHABDOMYOLYSIS [None]
